FAERS Safety Report 20700928 (Version 2)
Quarter: 2024Q2

REPORT INFORMATION
  Report Type: Spontaneous
  Country: US (occurrence: US)
  Receive Date: 20220412
  Receipt Date: 20240412
  Transmission Date: 20240715
  Serious: No
  Sender: FDA-Public Use
  Company Number: US-ASTELLAS-2021US045731

PATIENT
  Sex: Female

DRUGS (2)
  1. PROGRAF [Suspect]
     Active Substance: TACROLIMUS
     Indication: Liver transplant
     Dosage: 0.5 MG, TWICE DAILY
     Route: 065
     Dates: start: 2010
  2. NIFEDIPINE [Suspect]
     Active Substance: NIFEDIPINE
     Indication: Hypertension
     Dosage: UNK UNK, UNKNOWN FREQ.
     Route: 065

REACTIONS (11)
  - Vitamin D decreased [Unknown]
  - Hypertension [Unknown]
  - Peripheral swelling [Unknown]
  - Oedema [Unknown]
  - Erythema [Unknown]
  - Flushing [Unknown]
  - Headache [Unknown]
  - Constipation [Unknown]
  - Pruritus [Unknown]
  - Osteoporosis [Unknown]
  - Immunosuppressant drug level decreased [Unknown]
